FAERS Safety Report 7602548-5 (Version None)
Quarter: 2011Q3

REPORT INFORMATION
  Report Type: 
  Country: None (occurrence: None)
  Receive Date: 20110712
  Receipt Date: 20110701
  Transmission Date: 20111222
  Serious: Yes (Death, Life-Threatening, Hospitalization)
  Sender: FDA-Public Use
  Company Number: US-CELGENEUS-163-20785-11063112

PATIENT
  Sex: Female
  Weight: 73.548 kg

DRUGS (7)
  1. THALOMID [Suspect]
     Dosage: 200 MILLIGRAM
     Route: 048
     Dates: start: 20101201
  2. OMEPRAZOLE [Concomitant]
     Route: 065
  3. ACYCLOVIR [Concomitant]
     Indication: PROPHYLAXIS
     Route: 065
  4. THALOMID [Suspect]
     Indication: MULTIPLE MYELOMA
     Dosage: 100 MILLIGRAM
     Route: 048
     Dates: start: 20100701, end: 20100101
  5. THALOMID [Suspect]
     Dosage: 200 MILLIGRAM
     Route: 048
     Dates: start: 20110401, end: 20110101
  6. ATIVAN [Concomitant]
     Route: 065
  7. CELEXA [Concomitant]
     Route: 065

REACTIONS (4)
  - BONE LESION [None]
  - RENAL FAILURE ACUTE [None]
  - PANCYTOPENIA [None]
  - SEPSIS [None]
